FAERS Safety Report 23423209 (Version 1)
Quarter: 2024Q1

REPORT INFORMATION
  Report Type: Spontaneous
  Country: US (occurrence: None)
  Receive Date: 20240119
  Receipt Date: 20240119
  Transmission Date: 20240410
  Serious: No
  Sender: FDA-Public Use
  Company Number: None

PATIENT
  Sex: Female

DRUGS (1)
  1. SKYRIZI [Suspect]
     Active Substance: RISANKIZUMAB-RZAA
     Indication: Psoriatic arthropathy
     Dosage: OTHER FREQUENCY : EVERY12WEEKS;?
     Route: 042
     Dates: start: 202308

REACTIONS (4)
  - Pruritus [None]
  - Skin burning sensation [None]
  - Drug ineffective [None]
  - Rash erythematous [None]
